FAERS Safety Report 21732002 (Version 3)
Quarter: 2023Q1

REPORT INFORMATION
  Report Type: Report from Study
  Country: US (occurrence: US)
  Receive Date: 20221215
  Receipt Date: 20230130
  Transmission Date: 20230418
  Serious: No
  Sender: FDA-Public Use
  Company Number: US-002147023-NVSC2022US288966

PATIENT
  Sex: Male

DRUGS (3)
  1. ENTRESTO [Suspect]
     Active Substance: SACUBITRIL\VALSARTAN
     Indication: Product used for unknown indication
     Dosage: UNK
     Route: 065
     Dates: start: 202211
  2. CARVEDILOL [Suspect]
     Active Substance: CARVEDILOL
     Indication: Product used for unknown indication
     Dosage: UNK
     Route: 065
  3. ATENOLOL [Suspect]
     Active Substance: ATENOLOL
     Indication: Product used for unknown indication
     Dosage: UNK
     Route: 065

REACTIONS (8)
  - Pollakiuria [Not Recovered/Not Resolved]
  - Weight decreased [Recovering/Resolving]
  - Sleep apnoea syndrome [Unknown]
  - Hypersensitivity [Recovering/Resolving]
  - Sinus disorder [Recovering/Resolving]
  - Fatigue [Recovering/Resolving]
  - Somnolence [Unknown]
  - Blood pressure increased [Unknown]
